FAERS Safety Report 13539456 (Version 3)
Quarter: 2017Q2

REPORT INFORMATION
  Report Type: Spontaneous
  Country: US (occurrence: US)
  Receive Date: 20170512
  Receipt Date: 20170602
  Transmission Date: 20170830
  Serious: No
  Sender: FDA-Public Use
  Company Number: US-PFIZER INC-2017208017

PATIENT
  Age: 56 Year
  Sex: Female

DRUGS (4)
  1. FEMARA [Concomitant]
     Active Substance: LETROZOLE
     Indication: BREAST CANCER METASTATIC
  2. IBRANCE [Suspect]
     Active Substance: PALBOCICLIB
     Indication: BREAST CANCER METASTATIC
     Dosage: 125 MG, DAILY (ON DAYS 1-21 OF 28-DAYS CYCLE)
     Route: 048
     Dates: start: 20170424
  3. FEMARA [Concomitant]
     Active Substance: LETROZOLE
     Indication: BONE CANCER
     Dosage: 2.5 MG, DAILY
     Route: 048
     Dates: start: 20170407
  4. IBRANCE [Suspect]
     Active Substance: PALBOCICLIB
     Indication: BONE CANCER
     Dosage: 125 MG, UNK
     Dates: start: 20170419

REACTIONS (2)
  - Stomatitis [Recovered/Resolved]
  - Nasal discomfort [Unknown]
